FAERS Safety Report 9097327 (Version 1)
Quarter: 2013Q1

REPORT INFORMATION
  Report Type: Spontaneous
  Country: US (occurrence: US)
  Receive Date: 20130212
  Receipt Date: 20130212
  Transmission Date: 20140127
  Serious: Yes (Other)
  Sender: FDA-Public Use
  Company Number: US-PERRIGO-13US001157

PATIENT
  Age: 57 None
  Sex: Female
  Weight: 68.93 kg

DRUGS (2)
  1. DIPHENHYDRAMINE HYDROCHLORIDE [Suspect]
     Indication: INSOMNIA
     Dosage: 25 MG, QHS
     Route: 048
     Dates: end: 20130131
  2. TYLENOL PM [Concomitant]
     Indication: INSOMNIA
     Dosage: UNK,UNK
     Route: 048

REACTIONS (13)
  - Convulsion [Recovered/Resolved]
  - Tremor [Recovered/Resolved]
  - Altered state of consciousness [Recovered/Resolved]
  - Breath sounds abnormal [Recovered/Resolved]
  - Tongue biting [Recovered/Resolved]
  - Fall [Recovered/Resolved]
  - Dyskinesia [Recovered/Resolved]
  - Memory impairment [Not Recovered/Not Resolved]
  - Contusion [Recovered/Resolved]
  - Rib fracture [Recovering/Resolving]
  - Musculoskeletal chest pain [Recovering/Resolving]
  - Incorrect drug administration duration [Unknown]
  - Underdose [Recovered/Resolved]
